FAERS Safety Report 21048772 (Version 1)
Quarter: 2022Q3

REPORT INFORMATION
  Report Type: Spontaneous
  Country: US (occurrence: None)
  Receive Date: 20220706
  Receipt Date: 20220706
  Transmission Date: 20221027
  Serious: Yes (Disabling)
  Sender: FDA-Public Use
  Company Number: None

PATIENT
  Age: 79 Year
  Sex: Female
  Weight: 50.8 kg

DRUGS (8)
  1. PROLIA [Suspect]
     Active Substance: DENOSUMAB
     Indication: Bone loss
     Dosage: OTHER QUANTITY : ONE INFUSION;?OTHER ROUTE : INJECTED IN VEIN;?
     Route: 050
  2. PREDNISONE [Concomitant]
     Active Substance: PREDNISONE
  3. bisopropal [Concomitant]
  4. protonics [Concomitant]
  5. ELIQUIS [Concomitant]
     Active Substance: APIXABAN
  6. Vitamin and mineral supplements [Concomitant]
  7. B-12 injections [Concomitant]
  8. VITAMIN D3 [Concomitant]
     Active Substance: CHOLECALCIFEROL

REACTIONS (2)
  - Deafness [None]
  - Hearing aid user [None]

NARRATIVE: CASE EVENT DATE: 20160101
